FAERS Safety Report 15164099 (Version 2)
Quarter: 2018Q3

REPORT INFORMATION
  Report Type: Spontaneous
  Country: IT (occurrence: IT)
  Receive Date: 20180719
  Receipt Date: 20180808
  Transmission Date: 20181010
  Serious: Yes (Hospitalization)
  Sender: FDA-Public Use
  Company Number: IT-ADIENNEP-2018AD000402

PATIENT
  Age: 11 Year
  Sex: Female
  Weight: 71 kg

DRUGS (20)
  1. ACICLOVIR [Concomitant]
     Active Substance: ACYCLOVIR
     Dosage: 2400 MG DAILY
     Route: 048
     Dates: start: 20171110, end: 20171113
  2. TACHIPIRINA [Concomitant]
     Active Substance: ACETAMINOPHEN
     Dosage: 1 G DAILY
     Route: 048
  3. RANITIDINE HYDROCHLORIDE. [Concomitant]
     Active Substance: RANITIDINE HYDROCHLORIDE
     Dosage: 150 MG DAILY
     Route: 042
  4. UROMITEXAN [Concomitant]
     Active Substance: MESNA
     Dosage: 1100 MG DAILY
     Route: 042
     Dates: start: 20171115
  5. ALOXI [Concomitant]
     Active Substance: PALONOSETRON HYDROCHLORIDE
     Dates: start: 20171111
  6. CIPROFLOXACIN. [Concomitant]
     Active Substance: CIPROFLOXACIN
     Dosage: 1000 MG DAILY
     Route: 048
     Dates: start: 20171110, end: 20171115
  7. SANDIMMUN [Concomitant]
     Active Substance: CYCLOSPORINE
     Dosage: 180 MG DAILY
     Dates: start: 20171113
  8. EMEND [Concomitant]
     Active Substance: APREPITANT
     Dates: start: 20171111, end: 20171113
  9. THIOTEPA. [Suspect]
     Active Substance: THIOTEPA
     Indication: ALLOGENIC BONE MARROW TRANSPLANTATION THERAPY
     Dosage: 275 MG DAILY
     Route: 042
     Dates: start: 20171111, end: 20171112
  10. ANTRA [Concomitant]
     Active Substance: OMEPRAZOLE
     Dosage: 40 MG DAILY
     Route: 042
  11. URBASON [Concomitant]
     Active Substance: METHYLPREDNISOLONE
     Dosage: 40 MG DAILY
     Route: 042
     Dates: start: 20171114
  12. LASIX [Concomitant]
     Active Substance: FUROSEMIDE
     Dosage: 108 MG DAILY
     Route: 042
     Dates: start: 20171110
  13. ANTITHYMOCYTE IMMUNOGLOBULIN (RABBIT) [Suspect]
     Active Substance: LAPINE T-LYMPHOCYTE IMMUNE GLOBULIN
     Indication: ALLOGENIC BONE MARROW TRANSPLANTATION THERAPY
     Dosage: 137.5 MG DAILY
     Route: 042
     Dates: start: 20171113, end: 20171115
  14. FLUCONAZOLE. [Concomitant]
     Active Substance: FLUCONAZOLE
     Dosage: 350 MG DAILY
  15. TRIMETON [Concomitant]
     Active Substance: CHLORPHENIRAMINE MALEATE
     Dosage: 2 DF DAILY
     Route: 042
  16. METHOTREXATE. [Suspect]
     Active Substance: METHOTREXATE
     Indication: ALLOGENIC BONE MARROW TRANSPLANTATION THERAPY
     Dosage: CYCLICAL??????
     Dates: start: 20171119, end: 20171124
  17. NYSTATIN. [Concomitant]
     Active Substance: NYSTATIN
     Dosage: 15 MG DAILY
     Route: 048
  18. ENAPREN [Concomitant]
     Active Substance: ENALAPRIL MALEATE
     Dosage: 5 MG DAILY
  19. URSODEOXYCHOLIC ACID [Concomitant]
     Active Substance: URSODIOL
     Dosage: 600 MG DAILY
  20. ENDOXAN [Suspect]
     Active Substance: CYCLOPHOSPHAMIDE
     Indication: ALLOGENIC BONE MARROW TRANSPLANTATION THERAPY
     Dosage: 3300 MG DAILY
     Route: 042
     Dates: start: 20171113, end: 20171114

REACTIONS (3)
  - Petechiae [Recovering/Resolving]
  - Phlebitis [Recovering/Resolving]
  - Haematoma [Recovering/Resolving]

NARRATIVE: CASE EVENT DATE: 20171130
